FAERS Safety Report 4596609-5 (Version None)
Quarter: 2005Q1

REPORT INFORMATION
  Report Type: 
  Country: None (occurrence: None)
  Receive Date: 20050228
  Receipt Date: 20050214
  Transmission Date: 20050727
  Serious: Yes (Other)
  Sender: FDA-Public Use
  Company Number: 2005030461

PATIENT
  Sex: Male

DRUGS (2)
  1. VIAGRA [Suspect]
     Indication: ILL-DEFINED DISORDER
     Dosage: ORAL
     Route: 048
  2. ASPIRIN [Concomitant]

REACTIONS (4)
  - DIARRHOEA [None]
  - ERYTHEMA [None]
  - GASTRIC DISORDER [None]
  - PEYRONIE'S DISEASE [None]
